FAERS Safety Report 7700801-8 (Version None)
Quarter: 2011Q3

REPORT INFORMATION
  Report Type: 
  Country: None (occurrence: None)
  Receive Date: 20110822
  Receipt Date: 20110812
  Transmission Date: 20111222
  Serious: Yes (Hospitalization, Other)
  Sender: FDA-Public Use
  Company Number: CA-AMGEN-CANSP2011031067

PATIENT
  Age: 86 Year
  Sex: Female
  Weight: 68 kg

DRUGS (4)
  1. PREDNISONE [Concomitant]
  2. TYLENOL (CAPLET) [Concomitant]
  3. ENBREL [Suspect]
     Indication: RHEUMATOID ARTHRITIS
     Dosage: 50 MG, QWK
     Dates: start: 20080909
  4. METHOTREXATE [Concomitant]

REACTIONS (3)
  - HODGKIN'S DISEASE [None]
  - GROIN PAIN [None]
  - GASTROINTESTINAL PAIN [None]
